FAERS Safety Report 6086897-0 (Version None)
Quarter: 2009Q1

REPORT INFORMATION
  Report Type: 
  Country: None (occurrence: None)
  Receive Date: 20090217
  Receipt Date: 20081016
  Transmission Date: 20090719
  Serious: Yes (Other)
  Sender: FDA-Public Use
  Company Number: MC200800492

PATIENT

DRUGS (1)
  1. ANGIOMAX [Suspect]
     Indication: PERIPHERAL VASCULAR DISORDER

REACTIONS (1)
  - THROMBOSIS [None]
